FAERS Safety Report 11885673 (Version 1)
Quarter: 2016Q1

REPORT INFORMATION
  Report Type: Spontaneous
  Country: JP (occurrence: JP)
  Receive Date: 20160104
  Receipt Date: 20160104
  Transmission Date: 20160526
  Serious: Yes (Other)
  Sender: FDA-Public Use
  Company Number: JP-JUBILANT CADISTA PHARMACEUTICALS-2015JUB00435

PATIENT
  Age: 85 Year
  Sex: Female

DRUGS (2)
  1. UNSPECIFIED CALCIUM BLOCKER [Concomitant]
     Indication: HYPERTENSION
     Dosage: UNK
  2. ALENDRONATE [Suspect]
     Active Substance: ALENDRONATE SODIUM
     Indication: OSTEOPOROSIS
     Dosage: 5 MG, 1X/DAY (35 MG/WEEK)

REACTIONS (1)
  - Ulna fracture [Recovered/Resolved]
